FAERS Safety Report 7743723-9 (Version None)
Quarter: 2011Q3

REPORT INFORMATION
  Report Type: 
  Country: None (occurrence: None)
  Receive Date: 20110912
  Receipt Date: 20110902
  Transmission Date: 20111222
  Serious: Yes (Death)
  Sender: FDA-Public Use
  Company Number: US-MYLANLABS-2009S1009845

PATIENT
  Age: 40 Year
  Sex: Male
  Weight: 131.54 kg

DRUGS (17)
  1. HYDROCODONE BITARTRATE AND ACETAMINOPHEN [Suspect]
     Route: 048
  2. VALPROIC ACID [Concomitant]
  3. ATIVAN [Concomitant]
     Indication: ANXIETY
     Dosage: PRN
  4. FENTANYL-100 [Suspect]
     Dosage: CHANGED Q3D
     Route: 062
  5. DIGOXIN [Concomitant]
  6. CYCLOBENZAPRINE [Concomitant]
     Indication: MUSCLE SPASMS
     Dosage: PRN
  7. FENTANYL-100 [Suspect]
     Indication: PAIN
     Dosage: CHANGED Q3D
     Route: 062
     Dates: start: 20070530, end: 20070601
  8. HYDROCODONE BITARTRATE AND ACETAMINOPHEN [Suspect]
     Indication: PAIN
     Route: 048
  9. IBUPROFEN [Concomitant]
  10. CITALOPRAM HYDROBROMIDE [Concomitant]
  11. COLACE [Concomitant]
  12. METOPROLOL SUCCINATE [Concomitant]
  13. COUMADIN [Concomitant]
  14. FENTANYL-100 [Suspect]
     Dosage: CHANGED Q3D
     Route: 062
     Dates: start: 20070601, end: 20070607
  15. BUPROPION HCL [Concomitant]
  16. MAGNESIUM OXIDE [Concomitant]
  17. PROTONIX [Concomitant]

REACTIONS (3)
  - OVERDOSE [None]
  - HYPERTROPHIC CARDIOMYOPATHY [None]
  - TOXICITY TO VARIOUS AGENTS [None]
